FAERS Safety Report 11615184 (Version 1)
Quarter: 2015Q4

REPORT INFORMATION
  Report Type: Spontaneous
  Country: US (occurrence: None)
  Receive Date: 20151008
  Receipt Date: 20151008
  Transmission Date: 20160304
  Serious: Yes (Other)
  Sender: FDA-Public Use
  Company Number: None

PATIENT
  Weight: 103.87 kg

DRUGS (10)
  1. REQUIIP [Concomitant]
  2. METFORMIN [Concomitant]
     Active Substance: METFORMIN HYDROCHLORIDE
  3. NEUPRO [Suspect]
     Active Substance: ROTIGOTINE
     Dosage: APPLIED AS MEDICATED PATCH TO SKIN
     Route: 061
  4. E [Concomitant]
  5. SYNTHROID [Concomitant]
     Active Substance: LEVOTHYROXINE SODIUM
  6. MULTI VITAMIN [Concomitant]
     Active Substance: VITAMINS
  7. COQ3 [Concomitant]
  8. D3 [Concomitant]
     Active Substance: 25-HYDROXYCHOLECALCIFEROL, 5-TRANS-
  9. LIPITOR [Concomitant]
     Active Substance: ATORVASTATIN CALCIUM
  10. LOW DOSE ASPIRIN [Concomitant]
     Active Substance: ASPIRIN

REACTIONS (3)
  - Musculoskeletal disorder [None]
  - Sleep disorder [None]
  - Euphoric mood [None]
